FAERS Safety Report 4271781-5 (Version None)
Quarter: 2004Q1

REPORT INFORMATION
  Report Type: 
  Country: None (occurrence: None)
  Receive Date: 20040115
  Receipt Date: 20040109
  Transmission Date: 20041129
  Serious: Yes (Hospitalization)
  Sender: FDA-Public Use
  Company Number: US-GLAXOSMITHKLINE-A0492250A

PATIENT
  Age: 63 Year
  Sex: Female

DRUGS (3)
  1. WELLBUTRIN [Suspect]
     Indication: DEPRESSION
     Dosage: 150TAB TWICE PER DAY
     Route: 048
     Dates: start: 20031112, end: 20031117
  2. NICOTINE TRANSDERMAL PATCH [Concomitant]
  3. PROTONIX [Concomitant]

REACTIONS (5)
  - AMNESIA [None]
  - CONVULSION [None]
  - HYPOAESTHESIA ORAL [None]
  - SALIVARY HYPERSECRETION [None]
  - TONGUE BITING [None]
